FAERS Safety Report 9995432 (Version 1)
Quarter: 2014Q1

REPORT INFORMATION
  Report Type: Spontaneous
  Country: GB (occurrence: None)
  Receive Date: 20140307
  Receipt Date: 20140307
  Transmission Date: 20141002
  Serious: Yes (Other)
  Sender: FDA-Public Use
  Company Number: AUR-APL-2014-02582

PATIENT
  Age: 30 Year
  Sex: Female

DRUGS (1)
  1. ALENDRONIC ACID [Suspect]
     Indication: CROHN^S DISEASE

REACTIONS (2)
  - Maternal exposure during pregnancy [None]
  - Contraindication to medical treatment [None]
